FAERS Safety Report 18244480 (Version 4)
Quarter: 2021Q2

REPORT INFORMATION
  Report Type: Report from Study
  Country: None (occurrence: US)
  Receive Date: 20200909
  Receipt Date: 20210623
  Transmission Date: 20210717
  Serious: Yes (Other)
  Sender: FDA-Public Use
  Company Number: US-ABBVIE-20K-163-3511985-00

PATIENT
  Age: 63 Year
  Sex: Female

DRUGS (4)
  1. HUMIRA [Suspect]
     Active Substance: ADALIMUMAB
     Route: 058
  2. HUMIRA [Suspect]
     Active Substance: ADALIMUMAB
     Indication: RHEUMATOID ARTHRITIS
     Dosage: CITRATE FREE
     Route: 058
  3. HUMIRA [Suspect]
     Active Substance: ADALIMUMAB
     Route: 058
  4. HUMIRA [Suspect]
     Active Substance: ADALIMUMAB
     Route: 058

REACTIONS (13)
  - Knee operation [Unknown]
  - Diabetes mellitus [Unknown]
  - Pharyngitis streptococcal [Unknown]
  - Retro-orbital neoplasm [Unknown]
  - Sepsis [Unknown]
  - Post procedural complication [Unknown]
  - Gastroenteritis viral [Unknown]
  - Fatigue [Unknown]
  - Blood pressure increased [Unknown]
  - Spinal operation [Recovered/Resolved]
  - Spinal operation [Unknown]
  - Septic shock [Unknown]
  - Hypoaesthesia [Unknown]

NARRATIVE: CASE EVENT DATE: 2014
